FAERS Safety Report 7738191-7 (Version None)
Quarter: 2011Q3

REPORT INFORMATION
  Report Type: 
  Country: None (occurrence: None)
  Receive Date: 20110908
  Receipt Date: 20110906
  Transmission Date: 20111222
  Serious: No
  Sender: FDA-Public Use
  Company Number: GB-PFIZER INC-2011172102

PATIENT
  Age: 37 Year
  Sex: Female
  Weight: 94 kg

DRUGS (6)
  1. OXYTETRACYCLINE [Concomitant]
     Dosage: 500 MG, 2X/DAY,
     Route: 048
     Dates: start: 20110621, end: 20110719
  2. OXYTETRACYCLINE [Concomitant]
     Dosage: 250 MG, 2X/DAY
     Route: 048
     Dates: start: 20110720
  3. VARENICLINE TARTRATE [Suspect]
     Indication: SMOKING CESSATION THERAPY
     Dosage: 500 UG, 1X/DAY
     Route: 048
     Dates: start: 20110706, end: 20110709
  4. NICOTINE [Concomitant]
     Dosage: UNK
     Route: 055
     Dates: start: 20110531, end: 20110629
  5. LEVOTHYROXINE [Concomitant]
     Dosage: 500 UG, UNK
     Route: 048
     Dates: start: 20080101
  6. NICOTINE [Concomitant]
     Dosage: 15 MG, 1X/DAY
     Route: 062
     Dates: start: 20110412, end: 20110629

REACTIONS (4)
  - BEDRIDDEN [None]
  - HEADACHE [None]
  - NAUSEA [None]
  - DEPRESSED MOOD [None]
